FAERS Safety Report 8584878-6 (Version None)
Quarter: 2012Q3

REPORT INFORMATION
  Report Type: 
  Country: None (occurrence: None)
  Receive Date: 20120730
  Receipt Date: 20120723
  Transmission Date: 20120928
  Serious: Yes (Other)
  Sender: FDA-Public Use
  Company Number: 7149039

PATIENT
  Age: 14 Month
  Sex: Male

DRUGS (1)
  1. LEVOTHYROXINE SODIUM [Suspect]
     Indication: ACCIDENTAL DRUG INTAKE BY CHILD
     Dosage: 2/3 TABLET (ONCE), ORAL
     Route: 048
     Dates: start: 20120722, end: 20120722

REACTIONS (2)
  - ACCIDENTAL DRUG INTAKE BY CHILD [None]
  - NO ADVERSE EVENT [None]
